FAERS Safety Report 9799669 (Version 1)
Quarter: 2014Q1

REPORT INFORMATION
  Report Type: Spontaneous
  Country: US (occurrence: US)
  Receive Date: 20140106
  Receipt Date: 20140106
  Transmission Date: 20141002
  Serious: No
  Sender: FDA-Public Use
  Company Number: US-GILEAD-2010-0032677

PATIENT
  Age: 48 Year
  Sex: Female
  Weight: 121.11 kg

DRUGS (16)
  1. LETAIRIS [Suspect]
     Indication: PULMONARY ARTERIAL HYPERTENSION
     Route: 048
     Dates: start: 20100208
  2. PRAVASTATIN [Concomitant]
  3. LISINOPRIL [Concomitant]
  4. CRESTOR [Concomitant]
  5. DYAZIDE [Concomitant]
  6. WARFARIN [Concomitant]
  7. ADVAIR [Concomitant]
  8. BROVANA [Concomitant]
  9. ALBUTEROL [Concomitant]
  10. VICODIN [Concomitant]
  11. SKELAXIN [Concomitant]
  12. ASTEPRO [Concomitant]
  13. CETIRIZINE [Concomitant]
  14. MULTIVITAMIN [Concomitant]
  15. VITAMIN D [Concomitant]
  16. GLUCOSAMINE-CHONDR [Concomitant]

REACTIONS (1)
  - Oedema [Unknown]
